FAERS Safety Report 20645057 (Version 4)
Quarter: 2022Q2

REPORT INFORMATION
  Report Type: Other
  Country: US (occurrence: None)
  Receive Date: 20220328
  Receipt Date: 20220527
  Transmission Date: 20220721
  Serious: Yes (Hospitalization)
  Sender: FDA-Public Use
  Company Number: US-ROCHE-3060993

PATIENT
  Age: 64 Year
  Sex: Female

DRUGS (8)
  1. OCREVUS [Suspect]
     Active Substance: OCRELIZUMAB
     Indication: Relapsing multiple sclerosis
     Route: 042
     Dates: start: 20180314
  2. OCREVUS [Suspect]
     Active Substance: OCRELIZUMAB
     Dosage: DOT : 15/MAR/2021, 16/MAR/2020.
     Route: 042
  3. OCREVUS [Suspect]
     Active Substance: OCRELIZUMAB
     Route: 042
     Dates: start: 20210913
  4. OCREVUS [Suspect]
     Active Substance: OCRELIZUMAB
     Dosage: OCREVUS START DATE: 29/AUG/2017. LAST OCREVUS TREATMENT: 13/SEP/2021
     Route: 042
     Dates: start: 20170829
  5. VIMPAT [Concomitant]
     Active Substance: LACOSAMIDE
  6. ZONEGRAN [Concomitant]
     Active Substance: ZONISAMIDE
  7. SOLU-MEDROL [Concomitant]
     Active Substance: METHYLPREDNISOLONE SODIUM SUCCINATE
  8. CVT-E002 [Concomitant]

REACTIONS (2)
  - COVID-19 [Recovered/Resolved]
  - Upper respiratory tract infection [Recovered/Resolved]

NARRATIVE: CASE EVENT DATE: 20211201
